FAERS Safety Report 17016337 (Version 1)
Quarter: 2019Q4

REPORT INFORMATION
  Report Type: Report from Study
  Country: US (occurrence: US)
  Receive Date: 20191111
  Receipt Date: 20191111
  Transmission Date: 20200122
  Serious: Yes (Death)
  Sender: FDA-Public Use
  Company Number: US-PFIZER INC-2019483119

PATIENT
  Sex: Female

DRUGS (5)
  1. CARBOPLATIN. [Suspect]
     Active Substance: CARBOPLATIN
     Indication: BREAST CANCER METASTATIC
     Dosage: 267 MG/M2, DAILY (IN 1-HOUR INFUSIONS FOR 3 CONSECUTIVE DAYS, CYCLIC)
  2. THIOTEPA. [Suspect]
     Active Substance: THIOTEPA
     Indication: BREAST CANCER METASTATIC
     Dosage: 167 MG/M2, DAILY (CYCLIC)
  3. DOXORUBICIN [Concomitant]
     Active Substance: DOXORUBICIN
     Indication: BREAST CANCER METASTATIC
     Dosage: UNK
  4. G-CSF [Suspect]
     Active Substance: GRANULOCYTE COLONY-STIMULATING FACTOR NOS
     Indication: BREAST CANCER METASTATIC
     Dosage: 6 UG/KG, DAILY
     Route: 058
  5. CYCLOPHOSPHAMIDE. [Suspect]
     Active Substance: CYCLOPHOSPHAMIDE
     Indication: BREAST CANCER METASTATIC
     Dosage: 2000 MG/M2, DAILY

REACTIONS (2)
  - Pseudomonal sepsis [Fatal]
  - Respiratory failure [Fatal]
